FAERS Safety Report 5781215-7 (Version None)
Quarter: 2008Q2

REPORT INFORMATION
  Report Type: 
  Country: None (occurrence: None)
  Receive Date: 20080609
  Receipt Date: 20080528
  Transmission Date: 20081010
  Serious: No
  Sender: FDA-Public Use
  Company Number: 200813572

PATIENT

DRUGS (2)
  1. PRIVIGEN [Suspect]
     Dosage: 30 G DAILY; IV; IV
     Route: 042
  2. PRIVIGEN [Suspect]

REACTIONS (1)
  - ANAEMIA HAEMOLYTIC AUTOIMMUNE [None]
